FAERS Safety Report 7694406-5 (Version None)
Quarter: 2011Q3

REPORT INFORMATION
  Report Type: 
  Country: None (occurrence: None)
  Receive Date: 20110816
  Receipt Date: 20110803
  Transmission Date: 20111222
  Serious: Yes (Death, Hospitalization)
  Sender: FDA-Public Use
  Company Number: 2009-02236

PATIENT
  Age: 66 Year
  Sex: Male

DRUGS (13)
  1. VELCADE [Suspect]
     Indication: MULTIPLE MYELOMA
     Dosage: 2.9 MG, INTRAVENOUS
     Route: 042
     Dates: start: 20090522, end: 20090529
  2. ALLOPURINOL [Concomitant]
  3. BETAXOLOL [Concomitant]
  4. QUINAPRIL AND HYDROCHLOROTHIAZIDE (HYDROCHLOROTHIAZIDE, QUINAPRIL HYDR [Concomitant]
  5. ESCITALOPRAM [Concomitant]
  6. OMEPRAZOLE [Concomitant]
  7. DEXAMETHASONE [Suspect]
     Indication: MULTIPLE MYELOMA
  8. ASPIRIN [Concomitant]
  9. METFORMIN HCL [Concomitant]
  10. DARBEPOETIN ALFA (DARBEPOETIN ALFA) [Concomitant]
  11. VALACYCLOVIR [Concomitant]
  12. VALSARTAN [Concomitant]
  13. FILGRASTIM (FILGRASTIM) [Concomitant]

REACTIONS (3)
  - NO THERAPEUTIC RESPONSE [None]
  - SEPTIC SHOCK [None]
  - FEBRILE NEUTROPENIA [None]
